FAERS Safety Report 16962792 (Version 1)
Quarter: 2019Q4

REPORT INFORMATION
  Report Type: Spontaneous
  Country: US (occurrence: US)
  Receive Date: 20191025
  Receipt Date: 20191025
  Transmission Date: 20200122
  Serious: No
  Sender: FDA-Public Use
  Company Number: US-ASTRAZENECA-2019SF47964

PATIENT
  Age: 70 Day
  Sex: Female

DRUGS (6)
  1. LANSOPRAZOLE. [Concomitant]
     Active Substance: LANSOPRAZOLE
  2. LASIX [Concomitant]
     Active Substance: FUROSEMIDE
  3. VITAMIN D [Concomitant]
     Active Substance: VITAMIN D NOS
  4. ASPIRIN. [Concomitant]
     Active Substance: ASPIRIN
  5. SYNAGIS [Suspect]
     Active Substance: PALIVIZUMAB
     Route: 030
  6. DIGOXIN. [Concomitant]
     Active Substance: DIGOXIN

REACTIONS (1)
  - Dehydration [Unknown]

NARRATIVE: CASE EVENT DATE: 20190923
